FAERS Safety Report 7774590-5 (Version None)
Quarter: 2011Q3

REPORT INFORMATION
  Report Type: 
  Country: None (occurrence: None)
  Receive Date: 20110923
  Receipt Date: 20110913
  Transmission Date: 20111222
  Serious: Yes (Hospitalization)
  Sender: FDA-Public Use
  Company Number: US-PFIZER INC-2011215724

PATIENT
  Age: 49 Year
  Sex: Female
  Weight: 79.5 kg

DRUGS (11)
  1. ATIVAN [Concomitant]
     Dosage: 1 MG, AS NEEDED
     Route: 048
     Dates: start: 20110518, end: 20110721
  2. ADRIAMYCIN PFS [Suspect]
     Indication: BREAST CANCER
     Dosage: 115 MG, Q2W
     Route: 042
     Dates: start: 20110601, end: 20110713
  3. ACETAMINOPHEN [Concomitant]
     Dosage: UNK
     Route: 048
     Dates: start: 20110716, end: 20110719
  4. ZOFRAN [Concomitant]
     Dosage: 8 MG, Q8H
     Route: 048
     Dates: start: 20110716, end: 20110719
  5. EMEND [Concomitant]
     Dosage: 80 MG, ON DAYS 2 AND 3 OF CHEMO, AS NEEDED
     Route: 048
     Dates: start: 20110518, end: 20110702
  6. COMPAZINE [Concomitant]
     Dosage: 10 MG, AS NEEDED
     Route: 048
     Dates: start: 20110518, end: 20110721
  7. DECADRON [Concomitant]
     Dosage: 8 MG, DAYS 2 AND 3 POST THERAPY, AS NEEDED
     Route: 048
     Dates: start: 20110519, end: 20110721
  8. CYTOXAN [Suspect]
     Indication: BREAST CANCER
     Dosage: 1152 MG, Q2W
     Route: 042
     Dates: start: 20110601, end: 20110713
  9. PACLITAXEL [Suspect]
     Indication: BREAST CANCER
     Dosage: 153 MG, WEEKLY
     Route: 042
     Dates: start: 20110224, end: 20110512
  10. NERATINIB [Suspect]
     Indication: BREAST CANCER
     Dosage: 240 MG, 1X/DAY
     Route: 048
     Dates: start: 20110224, end: 20110518
  11. EMEND [Concomitant]
     Dosage: 12.5 MG, ON DAY OF CHEMO,   AS NEEDED
     Route: 048
     Dates: start: 20110518, end: 20110721

REACTIONS (1)
  - FEBRILE NEUTROPENIA [None]
